FAERS Safety Report 8393225-4 (Version None)
Quarter: 2012Q2

REPORT INFORMATION
  Report Type: 
  Country: None (occurrence: None)
  Receive Date: 20120529
  Receipt Date: 20120525
  Transmission Date: 20120825
  Serious: No
  Sender: FDA-Public Use
  Company Number: US-ABBOTT-12P-163-0939531-00

PATIENT
  Age: 74 Year
  Sex: Male
  Weight: 136.2 kg

DRUGS (21)
  1. CALCIUM 600 + 400 IU VIT D [Concomitant]
     Indication: PRODUCT USED FOR UNKNOWN INDICATION
  2. VICTROZA [Concomitant]
     Indication: DIABETES MELLITUS
  3. ANDROGEL [Suspect]
     Indication: BLOOD TESTOSTERONE DECREASED
     Dosage: 2 PUMP ACTUATIONS TWICE A DAY.
     Dates: start: 20120424
  4. TRILIPIX [Concomitant]
     Indication: BLOOD TRIGLYCERIDES INCREASED
  5. LOVAZA [Concomitant]
     Indication: PRODUCT USED FOR UNKNOWN INDICATION
  6. MATURITY FORMULA VITAMIN [Concomitant]
     Indication: VITAMIN SUPPLEMENTATION
  7. QUINAPRIL [Concomitant]
     Indication: HYPERTENSION
  8. TAMSULOSIN HCL [Concomitant]
     Indication: URINARY TRACT DISORDER
  9. VITAMIN E [Concomitant]
     Indication: PRODUCT USED FOR UNKNOWN INDICATION
  10. FLUOCINONIDE [Concomitant]
     Indication: PRURITUS
  11. METAMUCIL-2 [Concomitant]
     Indication: PRODUCT USED FOR UNKNOWN INDICATION
  12. PEGASUS INTERFERON-ALPHA [Concomitant]
     Indication: PLATELET COUNT INCREASED
  13. ASPIRIN [Concomitant]
     Indication: PRODUCT USED FOR UNKNOWN INDICATION
  14. TAMSULOSIN HCL [Concomitant]
     Indication: HYPERTENSION
  15. ADVAIR DISKUS 100/50 [Concomitant]
     Indication: LUNG DISORDER
     Dosage: 250/50MG
  16. FINESTRIDE [Concomitant]
     Indication: PROSTATIC DISORDER
  17. HYDROCHLOROTHIAZIDE [Concomitant]
     Indication: OEDEMA PERIPHERAL
  18. ATORVASTATIN CALCIUM [Concomitant]
     Indication: BLOOD CHOLESTEROL INCREASED
  19. ACTOS PLUS MET ER [Concomitant]
     Indication: DIABETES MELLITUS
  20. LANTUS [Concomitant]
     Indication: DIABETES MELLITUS
  21. MUSINEX [Concomitant]
     Indication: PRODUCT USED FOR UNKNOWN INDICATION

REACTIONS (3)
  - ERECTILE DYSFUNCTION [None]
  - FLUID RETENTION [None]
  - DRUG INEFFECTIVE [None]
